FAERS Safety Report 7992502-6 (Version None)
Quarter: 2011Q4

REPORT INFORMATION
  Report Type: 
  Country: None (occurrence: None)
  Receive Date: 20111219
  Receipt Date: 20111212
  Transmission Date: 20120403
  Serious: Yes (Other)
  Sender: FDA-Public Use
  Company Number: US-PFIZER INC-2011243616

PATIENT
  Sex: Female

DRUGS (2)
  1. NEURONTIN [Interacting]
     Dosage: UNK
  2. LYRICA [Suspect]
     Dosage: 75 MG, 2X/DAY
     Route: 048

REACTIONS (3)
  - IMPAIRED DRIVING ABILITY [None]
  - DRUG INTERACTION [None]
  - SOMNOLENCE [None]
